FAERS Safety Report 19372933 (Version 3)
Quarter: 2023Q1

REPORT INFORMATION
  Report Type: Report from Study
  Country: GB (occurrence: GB)
  Receive Date: 20210604
  Receipt Date: 20230228
  Transmission Date: 20230417
  Serious: Yes (Hospitalization)
  Sender: FDA-Public Use
  Company Number: GB-AKCEA THERAPEUTICS, INC.-2021IS001443

PATIENT

DRUGS (7)
  1. TEGSEDI [Suspect]
     Active Substance: INOTERSEN SODIUM
     Indication: Hereditary neuropathic amyloidosis
     Dosage: 284 MILLIGRAM, QW
     Route: 058
     Dates: start: 202001
  2. METHOTREXATE [Concomitant]
     Active Substance: METHOTREXATE
     Indication: Product used for unknown indication
     Dosage: 22.5 MG, QW
     Route: 065
  3. FOLIC ACID [Concomitant]
     Active Substance: FOLIC ACID
     Indication: Product used for unknown indication
     Dosage: 10 MG, QW
     Route: 065
  4. HYDROXYCHLOROQUINE [Concomitant]
     Active Substance: HYDROXYCHLOROQUINE
     Indication: Product used for unknown indication
     Dosage: 200 MG, BID
     Route: 065
  5. LANSOPRAZOLE [Concomitant]
     Active Substance: LANSOPRAZOLE
     Indication: Product used for unknown indication
     Dosage: 30 MG, QD
     Route: 065
  6. BISOPROLOL [Concomitant]
     Active Substance: BISOPROLOL
     Indication: Product used for unknown indication
     Dosage: 2.5 MG, QD
     Route: 065
  7. DIFLUNISAL [Concomitant]
     Active Substance: DIFLUNISAL
     Indication: Product used for unknown indication
     Dosage: 250 MG, BID
     Route: 065

REACTIONS (9)
  - Chest pain [Unknown]
  - Malaise [Unknown]
  - Chills [Unknown]
  - Abdominal pain [Unknown]
  - Dysuria [Unknown]
  - Nausea [Unknown]
  - Vomiting [Unknown]
  - Cholelithiasis [Unknown]
  - Gamma-glutamyltransferase increased [Unknown]
